FAERS Safety Report 5165713-5 (Version None)
Quarter: 2006Q4

REPORT INFORMATION
  Report Type: 
  Country: None (occurrence: None)
  Receive Date: 20061128
  Receipt Date: 20061110
  Transmission Date: 20070319
  Serious: Yes (Death)
  Sender: FDA-Public Use
  Company Number: 2006P1000493

PATIENT
  Age: 57 Year
  Sex: Female

DRUGS (7)
  1. NICARDIPINE HYDROCHLORIDE [Suspect]
     Indication: HYPERTENSION
     Dosage: 900 MG, UNK; PO
     Route: 048
     Dates: start: 20060825, end: 20060825
  2. LEVOTHYROXINE SODIUM [Suspect]
     Indication: DRUG USE FOR UNKNOWN INDICATION
     Dosage: 675 UG, UNK; PO
     Route: 048
     Dates: start: 20060825, end: 20060825
  3. QUINAPRIL HCL [Suspect]
     Indication: DRUG USE FOR UNKNOWN INDICATION
     Dosage: 180 MG; UNK; PO
     Route: 048
     Dates: start: 20060825, end: 20060825
  4. HYDROXYZINE [Suspect]
     Indication: DEPRESSION
     Dosage: 225 MG, UNK; PO
     Route: 048
     Dates: start: 20060825, end: 20060825
  5. ESCITALOPRAM OXALATE [Suspect]
     Indication: DEPRESSION
     Dosage: 180 MG; UNK; PO
     Route: 048
     Dates: start: 20060825, end: 20060825
  6. CALCIFEDIOL [Concomitant]
  7. VITAMIN D3 [Concomitant]

REACTIONS (9)
  - ACUTE RESPIRATORY DISTRESS SYNDROME [None]
  - INJURY [None]
  - LUNG INFILTRATION [None]
  - MULTIPLE DRUG OVERDOSE INTENTIONAL [None]
  - MYOCARDITIS [None]
  - PNEUMOTHORAX [None]
  - RENAL FAILURE ACUTE [None]
  - SHOCK [None]
  - SOMNOLENCE [None]
